FAERS Safety Report 7045019-X (Version None)
Quarter: 2010Q4

REPORT INFORMATION
  Report Type: 
  Country: None (occurrence: None)
  Receive Date: 20101014
  Receipt Date: 20101011
  Transmission Date: 20110411
  Serious: Yes (Other)
  Sender: FDA-Public Use
  Company Number: US-BRISTOL-MYERS SQUIBB COMPANY-15327893

PATIENT
  Age: 68 Year
  Sex: Female
  Weight: 66 kg

DRUGS (2)
  1. IXEMPRA KIT [Suspect]
     Dosage: A MONTH AGO
  2. LISINOPRIL [Concomitant]

REACTIONS (5)
  - ALOPECIA [None]
  - DIPLOPIA [None]
  - NAUSEA [None]
  - NEUROPATHY PERIPHERAL [None]
  - TEMPERATURE INTOLERANCE [None]
